FAERS Safety Report 11724331 (Version 1)
Quarter: 2015Q4

REPORT INFORMATION
  Report Type: Spontaneous
  Country: US (occurrence: None)
  Receive Date: 20151111
  Receipt Date: 20151111
  Transmission Date: 20160304
  Serious: No
  Sender: FDA-Public Use
  Company Number: US-MDT-ADR-2015-02131

PATIENT
  Age: 67 Year
  Sex: Female

DRUGS (1)
  1. LIORESAL [Suspect]
     Active Substance: BACLOFEN
     Indication: MUSCLE SPASTICITY
     Dosage: 460 MCG/DAY

REACTIONS (4)
  - Pruritus [None]
  - Asthenia [None]
  - Muscle spasms [None]
  - Therapy cessation [None]
